FAERS Safety Report 10143371 (Version 2)
Quarter: 2014Q2

REPORT INFORMATION
  Report Type: Spontaneous
  Country: IT (occurrence: IT)
  Receive Date: 20140430
  Receipt Date: 20140530
  Transmission Date: 20141212
  Serious: Yes (Hospitalization)
  Sender: FDA-Public Use
  Company Number: IT-B.I. PHARMACEUTICALS,INC./RIDGEFIELD-2014-BI-18536IT

PATIENT
  Age: 62 Year
  Sex: Male

DRUGS (5)
  1. PRADAXA [Suspect]
     Indication: ATRIAL FIBRILLATION
     Route: 048
     Dates: start: 20140408, end: 20140408
  2. LODOZ [Concomitant]
     Dosage: FORMULATION: FILM-COATED TABLET
     Route: 048
  3. LANOXIN [Concomitant]
     Route: 048
  4. NORVASC [Concomitant]
     Route: 048
  5. GLIBOMET [Concomitant]
     Dosage: FORMULATION: FILM-COATED TABLET
     Route: 048

REACTIONS (2)
  - Haematuria [Not Recovered/Not Resolved]
  - Renal colic [Not Recovered/Not Resolved]
